FAERS Safety Report 8537626 (Version 2)
Quarter: 2013Q3

REPORT INFORMATION
  Report Type: Spontaneous
  Country: US (occurrence: US)
  Receive Date: 20120501
  Receipt Date: 20130724
  Transmission Date: 20140515
  Serious: Yes (Hospitalization)
  Sender: FDA-Public Use
  Company Number: US-US-EMD SERONO, INC.-7128334

PATIENT
  Age: 33 Year
  Sex: Male

DRUGS (1)
  1. REBIF [Suspect]
     Indication: PRODUCT USED FOR UNKNOWN INDICATION
     Route: 058
     Dates: start: 20110706, end: 2013

REACTIONS (5)
  - Coma [Recovered/Resolved]
  - Gun shot wound [Unknown]
  - Abasia [Not Recovered/Not Resolved]
  - Skeletal injury [Unknown]
  - Traumatic renal injury [Unknown]
